FAERS Safety Report 4713308-7 (Version None)
Quarter: 2005Q3

REPORT INFORMATION
  Report Type: 
  Country: None (occurrence: None)
  Receive Date: 20050713
  Receipt Date: 20050711
  Transmission Date: 20060218
  Serious: Yes (Other)
  Sender: FDA-Public Use
  Company Number: US-GLAXOSMITHKLINE-A0565749A

PATIENT
  Age: 47 Year
  Sex: Female

DRUGS (7)
  1. FLONASE [Suspect]
     Indication: ILL-DEFINED DISORDER
     Route: 045
     Dates: start: 20050707, end: 20050709
  2. LOTENSIN [Concomitant]
  3. LASIX [Concomitant]
  4. K-DUR 10 [Concomitant]
  5. PAXIL [Concomitant]
  6. MULTI-VITAMIN [Concomitant]
  7. VIT C [Concomitant]

REACTIONS (5)
  - EYE HAEMORRHAGE [None]
  - EYE PRURITUS [None]
  - NASAL DISCOMFORT [None]
  - POOR QUALITY DRUG ADMINISTERED [None]
  - RASH [None]
